FAERS Safety Report 16345639 (Version 2)
Quarter: 2019Q2

REPORT INFORMATION
  Report Type: Spontaneous
  Country: US (occurrence: US)
  Receive Date: 20190523
  Receipt Date: 20190606
  Transmission Date: 20190711
  Serious: Yes (Other)
  Sender: FDA-Public Use
  Company Number: US-SA-2019SA139772

PATIENT
  Age: 61 Year
  Sex: Female

DRUGS (2)
  1. LEVEMIR [Concomitant]
     Active Substance: INSULIN DETEMIR
     Route: 065
  2. APIDRA SOLOSTAR [Suspect]
     Active Substance: INSULIN GLULISINE
     Indication: DIABETES MELLITUS
     Dosage: 26 U, QD
     Route: 065

REACTIONS (7)
  - Diabetes mellitus inadequate control [Unknown]
  - Feeling abnormal [Unknown]
  - Dizziness [Unknown]
  - Renal cancer [Unknown]
  - Blood glucose increased [Unknown]
  - Tremor [Unknown]
  - Product quality issue [Unknown]

NARRATIVE: CASE EVENT DATE: 201904
